FAERS Safety Report 24628934 (Version 1)
Quarter: 2024Q4

REPORT INFORMATION
  Report Type: Spontaneous
  Country: US (occurrence: US)
  Receive Date: 20241118
  Receipt Date: 20241118
  Transmission Date: 20250115
  Serious: No
  Sender: AUROBINDO
  Company Number: US-AUROBINDO-AUR-APL-2024-032677

PATIENT
  Sex: Female

DRUGS (1)
  1. CLONAZEPAM [Suspect]
     Active Substance: CLONAZEPAM
     Indication: Product used for unknown indication
     Dosage: 1 MILLIGRAM, TWO TIMES A DAY (1MG IN THE MORNING AND ANOTHER 1MG AT THE NIGHT)
     Route: 065
     Dates: end: 20240626

REACTIONS (4)
  - Anxiety [Unknown]
  - Sleep disorder [Unknown]
  - Drug ineffective [Unknown]
  - Product substitution issue [Unknown]
